FAERS Safety Report 4721617-0 (Version None)
Quarter: 2005Q3

REPORT INFORMATION
  Report Type: 
  Country: None (occurrence: None)
  Receive Date: 20050721
  Receipt Date: 20050105
  Transmission Date: 20060218
  Serious: No
  Sender: FDA-Public Use
  Company Number: US-BRISTOL-MYERS SQUIBB COMPANY-12814133

PATIENT
  Age: 61 Year
  Sex: Male
  Weight: 77 kg

DRUGS (7)
  1. WARFARIN SODIUM [Suspect]
     Indication: AORTIC VALVE STENOSIS
     Route: 048
  2. WARFARIN SODIUM [Suspect]
     Indication: HEART VALVE REPLACEMENT
     Route: 048
  3. FOLIC ACID [Concomitant]
  4. ZETIA [Concomitant]
  5. ATENOLOL [Concomitant]
  6. ZOCOR [Concomitant]
  7. SYNTHROID [Concomitant]

REACTIONS (1)
  - INTERNATIONAL NORMALISED RATIO ABNORMAL [None]
